FAERS Safety Report 16163974 (Version 1)
Quarter: 2019Q2

REPORT INFORMATION
  Report Type: Spontaneous
  Country: US (occurrence: US)
  Receive Date: 20190405
  Receipt Date: 20190405
  Transmission Date: 20190711
  Serious: Yes (Other)
  Sender: FDA-Public Use
  Company Number: US-TEVA-2019-US-1032207

PATIENT
  Sex: Female
  Weight: 91 kg

DRUGS (1)
  1. ROSUVASTATIN CALCIUM TABLETS [Suspect]
     Active Substance: ROSUVASTATIN CALCIUM
     Route: 065

REACTIONS (3)
  - Coronary artery bypass [Unknown]
  - Adverse event [Unknown]
  - Arterial stent insertion [Unknown]
